FAERS Safety Report 18803495 (Version 2)
Quarter: 2022Q1

REPORT INFORMATION
  Report Type: Spontaneous
  Country: US (occurrence: US)
  Receive Date: 20210129
  Receipt Date: 20220223
  Transmission Date: 20220423
  Serious: No
  Sender: FDA-Public Use
  Company Number: US-UCBSA-2019047976

PATIENT
  Age: 66 Year
  Sex: Female

DRUGS (5)
  1. KEPPRA [Suspect]
     Active Substance: LEVETIRACETAM
     Indication: Status epilepticus
     Dosage: UNKNOWN DOSE
     Route: 042
  2. KEPPRA [Suspect]
     Active Substance: LEVETIRACETAM
     Indication: Off label use
  3. PAZOPANIB [Concomitant]
     Active Substance: PAZOPANIB
     Indication: Product used for unknown indication
     Dosage: UNKNOWN DOSE
     Route: 048
  4. PHENYTOIN [Concomitant]
     Active Substance: PHENYTOIN
     Indication: Status epilepticus
     Dosage: UNKNOWN DOSE
  5. VALPROIC ACID [Concomitant]
     Active Substance: VALPROIC ACID
     Indication: Status epilepticus
     Dosage: UNKNOWN DOSE

REACTIONS (2)
  - Drug ineffective for unapproved indication [Unknown]
  - Off label use [Unknown]
